FAERS Safety Report 11887807 (Version 2)
Quarter: 2016Q1

REPORT INFORMATION
  Report Type: Spontaneous
  Country: US (occurrence: US)
  Receive Date: 20160105
  Receipt Date: 20160120
  Transmission Date: 20160526
  Serious: No
  Sender: FDA-Public Use
  Company Number: US-ALEXION-A201505409

PATIENT
  Sex: Male
  Weight: 45.35 kg

DRUGS (5)
  1. STRENSIQ [Suspect]
     Active Substance: ASFOTASE ALFA
     Indication: HYPOPHOSPHATASIA
     Dosage: 90 MG, (90MG IN THE MORNING AND EVENING)
     Route: 058
     Dates: start: 20151212, end: 20151212
  2. STRENSIQ [Suspect]
     Active Substance: ASFOTASE ALFA
     Dosage: 90 MG, (90MG IN THE MORNING AND EVENING)
     Route: 058
     Dates: start: 20151216, end: 20151216
  3. STRENSIQ [Suspect]
     Active Substance: ASFOTASE ALFA
     Dosage: 90 MG QD
     Route: 058
     Dates: start: 20151221
  4. STRENSIQ [Suspect]
     Active Substance: ASFOTASE ALFA
     Dosage: 90 MG, (90MG IN THE MORNING AND EVENING)
     Route: 058
     Dates: start: 20151214, end: 20151214
  5. STRENSIQ [Suspect]
     Active Substance: ASFOTASE ALFA
     Dosage: 90 MG, (90MG IN THE MORNING AND EVENING)
     Route: 058
     Dates: start: 20151219, end: 20151219

REACTIONS (3)
  - Pyrexia [Recovering/Resolving]
  - Blood alkaline phosphatase abnormal [Unknown]
  - Medication error [Recovered/Resolved]

NARRATIVE: CASE EVENT DATE: 20151212
